FAERS Safety Report 8759369 (Version 2)
Quarter: 2012Q4

REPORT INFORMATION
  Report Type: Report from Study
  Country: US (occurrence: US)
  Receive Date: 20120829
  Receipt Date: 20120913
  Transmission Date: 20130627
  Serious: Yes (Hospitalization)
  Sender: FDA-Public Use
  Company Number: US-SANOFI-AVENTIS-2012SA032692

PATIENT
  Age: 31 Year
  Sex: Female
  Weight: 76.3 kg

DRUGS (10)
  1. CABAZITAXEL [Suspect]
     Indication: MALIGNANT SOLID TUMOR
     Route: 042
     Dates: start: 20120201, end: 20120201
  2. CABAZITAXEL [Suspect]
     Indication: MALIGNANT SOLID TUMOR
     Route: 042
     Dates: start: 20120222, end: 20120222
  3. CABAZITAXEL [Suspect]
     Indication: MALIGNANT SOLID TUMOR
     Route: 042
     Dates: start: 20120423, end: 20120423
  4. CISPLATIN [Suspect]
     Indication: MALIGNANT SOLID TUMOR
     Route: 042
     Dates: start: 20120201, end: 20120201
  5. CISPLATIN [Suspect]
     Indication: MALIGNANT SOLID TUMOR
     Route: 042
     Dates: start: 20120222, end: 20120222
  6. CISPLATIN [Suspect]
     Indication: MALIGNANT SOLID TUMOR
     Route: 042
     Dates: start: 20120423, end: 20120423
  7. MORPHINE [Concomitant]
     Route: 065
     Dates: start: 201201
  8. HYDROCODONE [Concomitant]
     Route: 065
     Dates: start: 201201
  9. CELEXA [Concomitant]
     Route: 065
     Dates: start: 20120209
  10. IRON [Concomitant]
     Dates: start: 20120208

REACTIONS (1)
  - Cholecystitis acute [Recovered/Resolved]
